FAERS Safety Report 9629465 (Version 3)
Quarter: 2013Q4

REPORT INFORMATION
  Report Type: Spontaneous
  Country: BR (occurrence: BR)
  Receive Date: 20131017
  Receipt Date: 20131204
  Transmission Date: 20140711
  Serious: Yes (Hospitalization)
  Sender: FDA-Public Use
  Company Number: BR-NOVOPROD-389865

PATIENT
  Sex: Female
  Weight: 77 kg

DRUGS (12)
  1. LEVEMIR PENFILL [Suspect]
     Indication: TYPE 2 DIABETES MELLITUS
     Dosage: 50 IU, BID
     Route: 058
     Dates: start: 2007, end: 201310
  2. LEVEMIR PENFILL [Suspect]
     Dosage: 40 IU, BID
     Route: 058
     Dates: start: 20131120
  3. NOVORAPID PENFILL [Suspect]
     Indication: TYPE 2 DIABETES MELLITUS
     Dosage: 12 IU, TID
     Route: 058
     Dates: start: 2007, end: 201310
  4. NOVORAPID PENFILL [Suspect]
     Dosage: 12 IU, TID
     Route: 058
     Dates: start: 20131120
  5. LEVOTHYROXINE                      /00068002/ [Concomitant]
     Indication: HYPOTHYROIDISM
     Dosage: 2 TAB, QD
     Route: 048
     Dates: start: 2003
  6. HYDROCHLOROTHIAZIDE [Concomitant]
     Indication: HYPERTENSION
     Dosage: 2 TAB, QD
     Route: 048
     Dates: start: 2003
  7. ATENOLOL [Concomitant]
     Indication: HYPERTENSION
     Dosage: 1 TAB, QD
     Route: 048
     Dates: start: 2003
  8. AMLODIPINE                         /00972402/ [Concomitant]
     Indication: HYPERTENSION
     Dosage: 1 TAB, QD
     Route: 048
     Dates: start: 2003
  9. OMEPRAZOLE [Concomitant]
     Indication: ABDOMINAL DISCOMFORT
     Dosage: 2 TAB, QD
     Route: 048
     Dates: start: 2003
  10. LOSARTAN [Concomitant]
     Indication: HYPERTENSION
     Dosage: 2 TAB, QD
     Route: 048
     Dates: start: 2003
  11. SIMVASTATIN [Concomitant]
     Indication: BLOOD CHOLESTEROL ABNORMAL
     Dosage: 1 TAB, QD
     Route: 048
     Dates: start: 2003
  12. HYDRALAZINE [Concomitant]
     Indication: HYPERTENSION
     Dosage: 2 TAB, QD
     Route: 048
     Dates: start: 2003

REACTIONS (3)
  - Renal mass [Recovered/Resolved]
  - Pruritus [Recovered/Resolved]
  - Drug effect decreased [Unknown]
